FAERS Safety Report 8952738 (Version 1)
Quarter: 2012Q4

REPORT INFORMATION
  Report Type: 
  Country: DE (occurrence: DE)
  Receive Date: 20121205
  Receipt Date: 20121205
  Transmission Date: 20130627
  Serious: Yes (Hospitalization, Other)
  Sender: FDA-Public Use
  Company Number: DE-ROCHE-1163442

PATIENT
  Sex: Male

DRUGS (15)
  1. AVASTIN [Suspect]
     Indication: GLIOBLASTOMA
     Route: 042
     Dates: start: 20100702, end: 20110128
  2. TOREM [Concomitant]
     Indication: DISEASE PROGRESSION
     Route: 065
  3. QUERTO [Concomitant]
     Route: 065
  4. DELIX [Concomitant]
     Route: 065
  5. DIGIMERCK [Concomitant]
     Route: 065
  6. AMLODIPIN [Concomitant]
     Route: 065
  7. ACTRAPHANE [Concomitant]
     Route: 065
  8. ACTRAPID [Concomitant]
     Indication: DIABETES MELLITUS
     Dosage: 22-3-10 IU
     Route: 065
  9. ACTRAPID [Concomitant]
     Route: 065
  10. ACTRAPID [Concomitant]
     Route: 065
  11. MARCUMAR [Concomitant]
  12. PLAVIX [Concomitant]
  13. STATIN (UNK INGREDIENTS) [Concomitant]
  14. CALCIPARIN [Concomitant]
     Route: 065
  15. PROCARBAZINE [Concomitant]

REACTIONS (6)
  - Cerebrovascular accident [Recovered/Resolved with Sequelae]
  - Pneumonia aspiration [Unknown]
  - Dyspnoea [Unknown]
  - Pyrexia [Unknown]
  - Infection [Unknown]
  - Dysphagia [Unknown]
